FAERS Safety Report 15499625 (Version 1)
Quarter: 2018Q4

REPORT INFORMATION
  Report Type: Spontaneous
  Country: GB (occurrence: GB)
  Receive Date: 20181015
  Receipt Date: 20181015
  Transmission Date: 20190205
  Serious: Yes (Other)
  Sender: FDA-Public Use
  Company Number: PHHY2018GB122124

PATIENT
  Age: 42 Year
  Sex: Male
  Weight: 80 kg

DRUGS (2)
  1. OXCARBAZEPINE. [Suspect]
     Active Substance: OXCARBAZEPINE
     Indication: NEUROVASCULAR CONFLICT
     Dosage: 300 MG, UNK
     Route: 048
     Dates: start: 20180803, end: 20180916
  2. CARBAMAZEPINE. [Suspect]
     Active Substance: CARBAMAZEPINE
     Indication: NEUROVASCULAR CONFLICT
     Dosage: 300 MG, UNK
     Route: 048
     Dates: start: 20180518, end: 20180620

REACTIONS (3)
  - Urinary tract infection [Unknown]
  - Urinary retention [Recovered/Resolved]
  - Off label use [Unknown]

NARRATIVE: CASE EVENT DATE: 20180601
